FAERS Safety Report 13635477 (Version 1)
Quarter: 2017Q2

REPORT INFORMATION
  Report Type: Spontaneous
  Country: US (occurrence: US)
  Receive Date: 20170531
  Receipt Date: 20170531
  Transmission Date: 20170830
  Serious: No
  Sender: FDA-Public Use
  Company Number: US-ASTELLAS-1717331

PATIENT
  Sex: Male

DRUGS (11)
  1. LEVOTHYROXINE. [Concomitant]
     Active Substance: LEVOTHYROXINE
  2. PANTOPRAZOLE [Concomitant]
     Active Substance: PANTOPRAZOLE
  3. FLAXSEED [Concomitant]
     Active Substance: FLAX SEED
     Route: 065
  4. TARCEVA [Suspect]
     Active Substance: ERLOTINIB HYDROCHLORIDE
     Indication: LUNG NEOPLASM MALIGNANT
     Route: 048
     Dates: start: 20160127
  5. FENOFIBRATE. [Concomitant]
     Active Substance: FENOFIBRATE
  6. FINASTERIDE. [Concomitant]
     Active Substance: FINASTERIDE
  7. FISH OIL [Concomitant]
     Active Substance: FISH OIL
  8. LISINOPRIL. [Concomitant]
     Active Substance: LISINOPRIL
  9. VITAMIN B12 [Concomitant]
     Active Substance: CYANOCOBALAMIN
  10. LIOTHYRONINE [Concomitant]
     Active Substance: LIOTHYRONINE
  11. VITAMIN D3 [Concomitant]
     Active Substance: CHOLECALCIFEROL

REACTIONS (7)
  - Dry throat [Unknown]
  - Cough [Unknown]
  - Rhinorrhoea [Unknown]
  - Rash [Unknown]
  - Viral upper respiratory tract infection [Unknown]
  - Epistaxis [Unknown]
  - Sinusitis [Unknown]
